FAERS Safety Report 12449041 (Version 3)
Quarter: 2016Q2

REPORT INFORMATION
  Report Type: Spontaneous
  Country: CN (occurrence: CN)
  Receive Date: 20160608
  Receipt Date: 20160630
  Transmission Date: 20160815
  Serious: No
  Sender: FDA-Public Use
  Company Number: CN-009507513-1509CHN013292

PATIENT
  Age: 55 Year
  Sex: Female
  Weight: 59 kg

DRUGS (21)
  1. EMEND [Suspect]
     Active Substance: APREPITANT
     Dosage: DAY 2: 80 MG, ONCE
     Route: 048
     Dates: start: 20150802, end: 20150802
  2. MANNATIDE [Concomitant]
     Indication: IMMUNE ENHANCEMENT THERAPY
     Dosage: 4 ML/CC, QD
     Route: 041
     Dates: start: 20150731
  3. ORNITHINE ASPARTATE [Concomitant]
     Active Substance: ORNITHINE ASPARTATE
     Indication: LIVER DISORDER
     Dosage: 7.5 G, QD
     Route: 041
     Dates: start: 20150731, end: 20150807
  4. CISPLATIN. [Concomitant]
     Active Substance: CISPLATIN
     Indication: CHEMOTHERAPY
     Dosage: DOSE SCHEDULE: 120 MG/D1; TREATMEN CYCLE: 2/UNK
     Route: 041
     Dates: start: 20150801, end: 20150801
  5. LANZOPRAZOL [Concomitant]
     Active Substance: LANSOPRAZOLE
     Indication: ANTACID THERAPY
     Dosage: 30 MG, QD
     Route: 041
     Dates: start: 20150801, end: 20150807
  6. TROPISETRON HYDROCHLORIDE [Concomitant]
     Active Substance: TROPISETRON HYDROCHLORIDE
     Indication: PROPHYLAXIS OF NAUSEA AND VOMITING
  7. SHEN YI JIAO NANG [Concomitant]
     Indication: IMMUNE ENHANCEMENT THERAPY
     Dosage: DAILY DOSE: 40MG (FREQUENCY REPORTED AS BID)
     Route: 048
     Dates: start: 20150731
  8. SODIUM POTASSIUM CARBONATE [Concomitant]
     Indication: BLOOD ELECTROLYTES
     Dosage: 500 ML, ONCE
     Route: 042
     Dates: start: 20150731, end: 20150731
  9. CALCIUM CHLORIDE (+) DEXTROSE (+) MAGNESIUM CHLORIDE (+) POTASSIUM CHL [Concomitant]
     Indication: ELECTROLYTE IMBALANCE
     Dosage: 500 ML/CC, ONCE
     Route: 041
     Dates: start: 20150731, end: 20150731
  10. POTASSIUM PHOSPHATE, MONOBASIC [Concomitant]
     Active Substance: POTASSIUM PHOSPHATE, MONOBASIC
     Indication: MINERAL SUPPLEMENTATION
     Dosage: 4 ML/CC, QD
     Route: 041
     Dates: start: 20150801
  11. EMEND [Suspect]
     Active Substance: APREPITANT
     Indication: PROPHYLAXIS OF NAUSEA AND VOMITING
     Dosage: 125 MG, ONCE, DAY 1
     Route: 048
     Dates: start: 20150801, end: 20150801
  12. XIAO AI PING PIAN [Concomitant]
     Indication: TOXICITY TO VARIOUS AGENTS
     Dosage: 40 ML, QD
     Route: 042
     Dates: start: 20150731
  13. EMEND [Suspect]
     Active Substance: APREPITANT
     Dosage: DAY 3: 80 MG, ONCE
     Route: 048
     Dates: start: 20150803, end: 20150803
  14. SODIUM CHLORIDE. [Concomitant]
     Active Substance: SODIUM CHLORIDE
     Indication: FLUID IMBALANCE
     Dosage: 100 ML/CC, ONCE; 0.9 % INJECTION
     Route: 041
     Dates: start: 20150801, end: 20150801
  15. ZOLEDRONIC ACID [Concomitant]
     Active Substance: ZOLEDRONIC ACID
     Indication: BONE DISORDER
     Dosage: 4 MG, ONCE
     Route: 041
     Dates: start: 20150731, end: 20150731
  16. POTASSIUM PHOSPHATE, MONOBASIC [Concomitant]
     Active Substance: POTASSIUM PHOSPHATE, MONOBASIC
     Indication: ELECTROLYTE SUBSTITUTION THERAPY
     Dosage: DAILY DOSE: 4 MG (FREQUENCY REPORTED AS BID)
     Route: 041
     Dates: start: 20150731, end: 20150731
  17. GEMCITABINE [Concomitant]
     Active Substance: GEMCITABINE\GEMCITABINE HYDROCHLORIDE
     Indication: CHEMOTHERAPY
     Dosage: DOSE SCHEDULE:1.4 G/D1 AND D5; TREATMENT CYCLE: 2/ UNK
     Route: 041
     Dates: start: 20150801, end: 20150805
  18. TROPISETRON HYDROCHLORIDE [Concomitant]
     Active Substance: TROPISETRON HYDROCHLORIDE
     Indication: ANTIEMETIC SUPPORTIVE CARE
     Dosage: DAILY DOSE: 200 ML (FREQUENCY REPORTED AS BID)
     Route: 041
     Dates: start: 20150801, end: 20150807
  19. DEXAMETHASONE SODIUM PHOSPHATE. [Concomitant]
     Active Substance: DEXAMETHASONE SODIUM PHOSPHATE
     Dosage: 5 MG, QD (EXCEPT 04-AUG-2015)
     Route: 041
     Dates: start: 20150801, end: 20150805
  20. RIBOFLAVIN 5^-PHOSPHATE SODIUM [Concomitant]
     Active Substance: RIBOFLAVIN SODIUM
     Indication: LIVER DISORDER
     Dosage: 30 MG, QD
     Route: 041
     Dates: start: 20150731
  21. MARSDENIA TENACISSIMA [Concomitant]
     Indication: NEOPLASM
     Dosage: 40 ML/CC, QD
     Route: 041
     Dates: start: 20150731

REACTIONS (9)
  - Nasal dryness [Recovered/Resolved]
  - White blood cell count decreased [Recovered/Resolved]
  - Abdominal discomfort [Recovered/Resolved]
  - Diarrhoea [Recovered/Resolved]
  - Constipation [Recovered/Resolved]
  - Dry eye [Recovered/Resolved]
  - Platelet count decreased [Recovered/Resolved]
  - Back pain [Recovered/Resolved]
  - Dysuria [Recovered/Resolved]

NARRATIVE: CASE EVENT DATE: 20150803
